FAERS Safety Report 7642090-9 (Version None)
Quarter: 2011Q3

REPORT INFORMATION
  Report Type: 
  Country: None (occurrence: None)
  Receive Date: 20110728
  Receipt Date: 20110722
  Transmission Date: 20111222
  Serious: Yes (Life-Threatening, Hospitalization)
  Sender: FDA-Public Use
  Company Number: CH-ELI_LILLY_AND_COMPANY-CH201107000283

PATIENT
  Sex: Female
  Weight: 80 kg

DRUGS (7)
  1. OLMESARTAN MEDOXOMIL [Concomitant]
  2. EFFIENT [Suspect]
     Dosage: 10 MG, (MAINTENANCE DOSE)
     Dates: end: 20110628
  3. DIAMICRON MR [Concomitant]
     Dosage: 30 MG, UNK
  4. ASPIRIN [Concomitant]
  5. EFFIENT [Suspect]
     Indication: ANGINA PECTORIS
     Dosage: 60 MG, (LOADING DOSE)
     Route: 065
     Dates: start: 20110522
  6. GALVUS [Concomitant]
  7. BILOL [Concomitant]

REACTIONS (2)
  - URTICARIA [None]
  - PHOTOSENSITIVITY REACTION [None]
